FAERS Safety Report 23628628 (Version 1)
Quarter: 2024Q1

REPORT INFORMATION
  Report Type: Spontaneous
  Country: US (occurrence: US)
  Receive Date: 20240313
  Receipt Date: 20240313
  Transmission Date: 20240409
  Serious: No
  Sender: FDA-Public Use
  Company Number: US-FreseniusKabi-FK202403439

PATIENT
  Age: 43 Year
  Sex: Male
  Weight: 102.06 kg

DRUGS (2)
  1. XYLOCAINE [Suspect]
     Active Substance: LIDOCAINE HYDROCHLORIDE
     Indication: Allergy test
     Dosage: INJECTION, ONCE?XYLOCAINE MDV 1 PERCENT 50ML?1 ML INJECTION OF XYLOCAINE INTRAMUSCULAR IN TRAPEZIUS
     Route: 030
     Dates: start: 20240227, end: 20240227
  2. OZEMPIC [Concomitant]
     Active Substance: SEMAGLUTIDE
     Indication: Product used for unknown indication

REACTIONS (10)
  - Off label use [Recovered/Resolved]
  - Injection site pain [Recovered/Resolved]
  - Injection site erythema [Recovered/Resolved]
  - Injection site swelling [Recovered/Resolved]
  - Hyperaesthesia [Recovered/Resolved]
  - Injection site warmth [Recovered/Resolved]
  - Injection site mass [Recovered/Resolved]
  - Anxiety [Recovered/Resolved]
  - Hypersensitivity [Recovered/Resolved]
  - Rash [Recovered/Resolved]

NARRATIVE: CASE EVENT DATE: 20240227
